FAERS Safety Report 8505056-2 (Version None)
Quarter: 2012Q3

REPORT INFORMATION
  Report Type: 
  Country: None (occurrence: None)
  Receive Date: 20120712
  Receipt Date: 20120629
  Transmission Date: 20120928
  Serious: Yes (Hospitalization, Other)
  Sender: FDA-Public Use
  Company Number: JP-009507513-1206USA04116

PATIENT

DRUGS (1)
  1. ALENDRONATE SODIUM [Suspect]
     Dosage: 5 MG, QD
     Route: 048
     Dates: start: 20060401, end: 20100701

REACTIONS (3)
  - PATHOLOGICAL FRACTURE [None]
  - OSTEONECROSIS OF JAW [None]
  - OSTEOMYELITIS [None]
